FAERS Safety Report 15240211 (Version 1)
Quarter: 2018Q3

REPORT INFORMATION
  Report Type: Spontaneous
  Country: GB (occurrence: GB)
  Receive Date: 20180804
  Receipt Date: 20180804
  Transmission Date: 20181010
  Serious: Yes (Other)
  Sender: FDA-Public Use
  Company Number: GB-MICRO LABS LIMITED-BB2018-01859

PATIENT
  Age: 59 Year
  Sex: Female
  Weight: 80 kg

DRUGS (27)
  1. COCODAMOL [Concomitant]
     Active Substance: ACETAMINOPHEN\CODEINE PHOSPHATE
     Dosage: TAKE 1 OR 2 4 TIMES/DAY
     Dates: start: 20180326
  2. LAXIDO [Concomitant]
     Active Substance: POLYETHYLENE GLYCOL 3350\POTASSIUM CHLORIDE\SODIUM BICARBONATE\SODIUM CHLORIDE
     Dates: start: 20180326
  3. DOXAZOSIN [Concomitant]
     Active Substance: DOXAZOSIN\DOXAZOSIN MESYLATE
     Dosage: NIGHT
     Dates: start: 20180326
  4. OTOMIZE [Concomitant]
     Active Substance: DEXAMETHASONE\NEOMYCIN SULFATE
     Dosage: PUFF INTO THE EAR
     Route: 001
     Dates: start: 20180424, end: 20180425
  5. CLOTRIMAZOLE. [Concomitant]
     Active Substance: CLOTRIMAZOLE
     Dosage: APPLY 2?3 TIMES/DAY
     Dates: start: 20180606, end: 20180607
  6. RIZATRIPTAN. [Concomitant]
     Active Substance: RIZATRIPTAN
     Dosage: AS DIRECTED
     Dates: start: 20180326
  7. ZOPICLONE [Concomitant]
     Active Substance: ZOPICLONE
     Dosage: NIGHT
     Dates: start: 20180326
  8. AMLODIPINE [Concomitant]
     Active Substance: AMLODIPINE BESYLATE
     Dates: start: 20180326
  9. DERMOVATE [Concomitant]
     Active Substance: CLOBETASOL
     Dosage: APPLY A THIN LAYER TO THE AFFECTED AREA
     Dates: start: 20180605, end: 20180703
  10. OMEPRAZOLE. [Concomitant]
     Active Substance: OMEPRAZOLE
     Dates: start: 20180326
  11. LACTULOSE. [Concomitant]
     Active Substance: LACTULOSE
     Dosage: MORNING
     Dates: start: 20180326
  12. ATENOLOL. [Concomitant]
     Active Substance: ATENOLOL
     Dates: start: 20180326
  13. XYLOPROCT [Concomitant]
     Dosage: APPLY AS NEEDED
     Dates: start: 20180618, end: 20180625
  14. AMITRIPTYLINE HYDROCHLORIDE. [Concomitant]
     Active Substance: AMITRIPTYLINE HYDROCHLORIDE
     Dates: start: 20180326
  15. CODEINE PHOSPHATE [Concomitant]
     Active Substance: CODEINE PHOSPHATE
     Dates: start: 20180426, end: 20180503
  16. ACETIC ACID. [Concomitant]
     Active Substance: ACETIC ACID
     Dosage: SPRAY
     Dates: start: 20180413, end: 20180420
  17. FLUCONAZOLE. [Concomitant]
     Active Substance: FLUCONAZOLE
     Dosage: USE AS DIRECTED
     Dates: start: 20180710, end: 20180711
  18. CHLORPHENAMINE [Concomitant]
     Active Substance: CHLORPHENIRAMINE MALEATE
     Dosage: EVERY 4?6 HRS
     Dates: start: 20180712
  19. BENDROFLUMETHIAZIDE [Concomitant]
     Active Substance: BENDROFLUMETHIAZIDE
     Dosage: MORNING
     Dates: start: 20180326
  20. DOXYCYCLINE. [Concomitant]
     Active Substance: DOXYCYCLINE
     Dates: start: 20180712
  21. ATORVASTATIN [Concomitant]
     Active Substance: ATORVASTATIN
     Dates: start: 20180326
  22. DEXOMON SR [Concomitant]
     Dates: start: 20180326
  23. CETIRIZINE [Concomitant]
     Active Substance: CETIRIZINE HYDROCHLORIDE
     Dates: start: 20180426, end: 20180526
  24. LOSARTAN. [Concomitant]
     Active Substance: LOSARTAN
     Dates: start: 20180326
  25. AMOXICILLIN/CLAVULANIC ACID [Suspect]
     Active Substance: AMOXICILLIN\CLAVULANIC ACID
     Dates: start: 20180712
  26. CHLORAMPHENICOL [Concomitant]
     Active Substance: CHLORAMPHENICOL
     Dates: start: 20180413, end: 20180420
  27. FLUTICASONE FUROATE [Concomitant]
     Active Substance: FLUTICASONE FUROATE
     Dosage: 2 SPRAYS INTO EACH NOSTRIL
     Route: 045
     Dates: start: 20180426, end: 20180625

REACTIONS (2)
  - Pruritus generalised [Recovering/Resolving]
  - Joint swelling [Recovering/Resolving]

NARRATIVE: CASE EVENT DATE: 20180712
